FAERS Safety Report 8201996-2 (Version None)
Quarter: 2012Q1

REPORT INFORMATION
  Report Type: 
  Country: None (occurrence: None)
  Receive Date: 20120312
  Receipt Date: 20120305
  Transmission Date: 20120608
  Serious: Yes (Hospitalization)
  Sender: FDA-Public Use
  Company Number: US-JNJFOC-20120112120

PATIENT
  Sex: Female
  Weight: 59.42 kg

DRUGS (6)
  1. BONIVA [Concomitant]
     Indication: OSTEOPOROSIS
  2. MEDROL [Concomitant]
     Indication: RHEUMATOID ARTHRITIS
     Dates: start: 20040101
  3. VITAMIN D [Concomitant]
     Indication: OSTEOPOROSIS
  4. LEVOTHYROXINE SODIUM [Concomitant]
     Indication: HYPOTHYROIDISM
     Dates: start: 19900101
  5. NEXIUM [Concomitant]
     Indication: GASTROOESOPHAGEAL REFLUX DISEASE
     Dates: start: 20070101
  6. SIMPONI [Suspect]
     Indication: RHEUMATOID ARTHRITIS
     Route: 058

REACTIONS (6)
  - FALL [None]
  - CEREBRAL HAEMORRHAGE [None]
  - PAIN [None]
  - COMA [None]
  - DRUG DOSE OMISSION [None]
  - DEVICE FAILURE [None]
